FAERS Safety Report 17552358 (Version 1)
Quarter: 2020Q1

REPORT INFORMATION
  Report Type: Spontaneous
  Country: US (occurrence: US)
  Receive Date: 20200317
  Receipt Date: 20200317
  Transmission Date: 20200409
  Serious: No
  Sender: FDA-Public Use
  Company Number: US-MATRIXX INITIATIVES, INC.-2081710

PATIENT
  Age: 34 Year
  Sex: Male
  Weight: 54.55 kg

DRUGS (1)
  1. ZICAM COLD REMEDY NASAL SWABS (HOMEOPATHICS) [Suspect]
     Active Substance: HOMEOPATHICS\ZINC ACETATE\ZINC GLUCONATE
     Indication: PROPHYLAXIS
     Route: 045
     Dates: start: 20200308, end: 20200308

REACTIONS (2)
  - Anosmia [None]
  - Dysgeusia [None]
